FAERS Safety Report 7714129-3 (Version None)
Quarter: 2011Q3

REPORT INFORMATION
  Report Type: 
  Country: None (occurrence: None)
  Receive Date: 20110829
  Receipt Date: 20110817
  Transmission Date: 20111222
  Serious: No
  Sender: FDA-Public Use
  Company Number: DE-AMGEN-DEUSP2011017621

PATIENT
  Age: 62 Year
  Sex: Male
  Weight: 120 kg

DRUGS (1)
  1. ENBREL [Suspect]
     Indication: PSORIASIS
     Dosage: 50 MG, UNK
     Route: 065
     Dates: start: 20090401

REACTIONS (3)
  - GAMMA-GLUTAMYLTRANSFERASE INCREASED [None]
  - ASPARTATE AMINOTRANSFERASE INCREASED [None]
  - HEPATIC ENZYME INCREASED [None]
